FAERS Safety Report 4964131-X (Version None)
Quarter: 2006Q1

REPORT INFORMATION
  Report Type: 
  Country: None (occurrence: None)
  Receive Date: 20060330
  Receipt Date: 20060317
  Transmission Date: 20060701
  Serious: Yes (Hospitalization)
  Sender: FDA-Public Use
  Company Number: US-2006-003544

PATIENT
  Age: 71 Year
  Sex: Female
  Weight: 66 kg

DRUGS (7)
  1. LEUKINE [Suspect]
     Indication: AGRANULOCYTOSIS
     Dosage: 500 UG, 1X/DAY, SUBCUTANEOUS
     Route: 058
     Dates: start: 20060210, end: 20060214
  2. MITOMYCIN [Concomitant]
  3. FLUOROURACIL [Concomitant]
  4. COMPAZINE [Concomitant]
  5. ACCUPRIL [Concomitant]
  6. TOPROL-XL [Concomitant]
  7. STOMATOLOGICALS, MOUTH PREPARATIONS [Concomitant]

REACTIONS (1)
  - ATRIAL FIBRILLATION [None]
